FAERS Safety Report 7920078-8 (Version None)
Quarter: 2011Q4

REPORT INFORMATION
  Report Type: 
  Country: None (occurrence: None)
  Receive Date: 20111117
  Receipt Date: 20111103
  Transmission Date: 20120403
  Serious: Yes (Hospitalization, Other)
  Sender: FDA-Public Use
  Company Number: BR-SANOFI-AVENTIS-2011SA072704

PATIENT
  Age: 88 Year
  Sex: Female
  Weight: 54 kg

DRUGS (6)
  1. CARDIZEM [Concomitant]
     Route: 048
  2. AAS INFANTIL [Concomitant]
     Route: 048
  3. CILOSTAZOL [Concomitant]
     Route: 048
  4. ROHYPNOL [Concomitant]
     Route: 048
  5. LASIX [Concomitant]
     Route: 048
  6. LANTUS [Suspect]
     Indication: TYPE 2 DIABETES MELLITUS
     Dosage: DAILY DOSE: 12 TO 15 IU
     Route: 058
     Dates: start: 20080101

REACTIONS (1)
  - CEREBROVASCULAR ACCIDENT [None]
